FAERS Safety Report 25396446 (Version 3)
Quarter: 2025Q3

REPORT INFORMATION
  Report Type: Spontaneous
  Country: US (occurrence: US)
  Receive Date: 20250604
  Receipt Date: 20250716
  Transmission Date: 20251021
  Serious: No
  Sender: BAYER HEALTHCARE PHARMACEUTICALS INC.
  Company Number: US-BAYER-2025A074194

PATIENT
  Sex: Female

DRUGS (1)
  1. ESTRADIOL [Suspect]
     Active Substance: ESTRADIOL
     Route: 062

REACTIONS (7)
  - Device adhesion issue [None]
  - Hot flush [None]
  - Stress [None]
  - Hyperhidrosis [None]
  - Depressed mood [None]
  - Hypertension [None]
  - Night sweats [None]
